FAERS Safety Report 9969672 (Version 1)
Quarter: 2014Q1

REPORT INFORMATION
  Report Type: Spontaneous
  Country: US (occurrence: None)
  Receive Date: 20140304
  Receipt Date: 20140304
  Transmission Date: 20141002
  Serious: Yes (Hospitalization)
  Sender: FDA-Public Use
  Company Number: UTC-044826

PATIENT
  Age: 30 Year
  Sex: Male

DRUGS (1)
  1. REMODULIN [Suspect]
     Indication: PULMONARY ARTERIAL HYPERTENSION
     Route: 041
     Dates: start: 200111

REACTIONS (9)
  - Pyrexia [None]
  - Pneumonia [None]
  - Gastrointestinal infection [None]
  - Acute respiratory distress syndrome [None]
  - Tracheal haemorrhage [None]
  - Medical induction of coma [None]
  - Localised infection [None]
  - Thrombosis [None]
  - Thrombosis [None]
